FAERS Safety Report 9626313 (Version 1)
Quarter: 2013Q4

REPORT INFORMATION
  Report Type: Spontaneous
  Country: CA (occurrence: CA)
  Receive Date: 20131016
  Receipt Date: 20131016
  Transmission Date: 20140711
  Serious: Yes (Hospitalization)
  Sender: FDA-Public Use
  Company Number: CA-BAXTER-2013BAX039523

PATIENT
  Age: 59 Year
  Sex: Male

DRUGS (6)
  1. DIANEAL PD101 SOLUTION WITH 1.5% DEXTROSE [Suspect]
     Indication: RENAL FAILURE
     Route: 033
     Dates: start: 201302
  2. DIANEAL PD101 SOLUTION WITH 1.5% DEXTROSE [Suspect]
     Indication: PERITONEAL DIALYSIS
  3. DIANEAL PD101 SOLUTION WITH 2.5% DEXTROSE [Suspect]
     Indication: RENAL FAILURE
     Route: 033
     Dates: start: 201302
  4. DIANEAL PD101 SOLUTION WITH 2.5% DEXTROSE [Suspect]
     Indication: PERITONEAL DIALYSIS
  5. EXTRANEAL [Suspect]
     Indication: RENAL FAILURE
     Route: 033
     Dates: start: 201302
  6. EXTRANEAL [Suspect]
     Indication: PERITONEAL DIALYSIS

REACTIONS (1)
  - Cellulitis [Unknown]
